FAERS Safety Report 24548237 (Version 1)
Quarter: 2024Q4

REPORT INFORMATION
  Report Type: Spontaneous
  Country: US (occurrence: US)
  Receive Date: 20241025
  Receipt Date: 20241025
  Transmission Date: 20250115
  Serious: No
  Sender: AJANTA PHARMA USA INC
  Company Number: US-AJANTA-2024AJA00162

PATIENT
  Sex: Male

DRUGS (1)
  1. SILDENAFIL [Suspect]
     Active Substance: SILDENAFIL
     Indication: Erectile dysfunction
     Dates: start: 2024

REACTIONS (9)
  - Genital hypoaesthesia [Not Recovered/Not Resolved]
  - Post micturition dribble [Not Recovered/Not Resolved]
  - Loss of libido [Not Recovered/Not Resolved]
  - Genital dryness [Not Recovered/Not Resolved]
  - Dysuria [Not Recovered/Not Resolved]
  - Penile pain [Recovered/Resolved]
  - Back pain [Not Recovered/Not Resolved]
  - Pollakiuria [Not Recovered/Not Resolved]
  - Pain [Not Recovered/Not Resolved]

NARRATIVE: CASE EVENT DATE: 20240101
